FAERS Safety Report 12245954 (Version 1)
Quarter: 2016Q2

REPORT INFORMATION
  Report Type: Spontaneous
  Country: US (occurrence: None)
  Receive Date: 20160406
  Receipt Date: 20160406
  Transmission Date: 20160815
  Serious: Yes (Hospitalization)
  Sender: FDA-Public Use
  Company Number: None

PATIENT
  Age: 69 Year
  Sex: Female
  Weight: 60.2 kg

DRUGS (13)
  1. TYLENOL [Concomitant]
     Active Substance: ACETAMINOPHEN
  2. CALCIUM CARBONATE. [Concomitant]
     Active Substance: CALCIUM CARBONATE
  3. NAPROXEN SODIUM (ALEVE) [Concomitant]
  4. TRAMADOL (ULTRAM) [Concomitant]
  5. HYDROCHLOROTHIAZIDE. [Concomitant]
     Active Substance: HYDROCHLOROTHIAZIDE
  6. REMERON [Concomitant]
     Active Substance: MIRTAZAPINE
  7. PEMBROLIZUMAB, 100MG/4ML [Suspect]
     Active Substance: PEMBROLIZUMAB
     Indication: MESOTHELIOMA
     Route: 041
     Dates: start: 20150729, end: 20160224
  8. FLUOXETINE (PROZAC) [Concomitant]
  9. LORAZEPAM (ATIVAN) [Concomitant]
  10. MULTIVITAMIN [Concomitant]
     Active Substance: VITAMINS
  11. LOVENOX [Concomitant]
     Active Substance: ENOXAPARIN SODIUM
  12. OMEGA-3 FATTY ACIDS/FISH OIL (FISH OIL OMEGA 3-6-9) [Concomitant]
  13. CEPHALEXIN (KEFLEX) [Concomitant]

REACTIONS (2)
  - Adrenal insufficiency [None]
  - Mental status changes [None]

NARRATIVE: CASE EVENT DATE: 20160328
